FAERS Safety Report 6209582-0 (Version None)
Quarter: 2009Q2

REPORT INFORMATION
  Report Type: 
  Country: None (occurrence: None)
  Receive Date: 20090601
  Receipt Date: 20090522
  Transmission Date: 20091009
  Serious: Yes (Hospitalization)
  Sender: FDA-Public Use
  Company Number: JP-BRISTOL-MYERS SQUIBB COMPANY-14642102

PATIENT
  Age: 63 Year
  Sex: Male
  Weight: 64 kg

DRUGS (9)
  1. ERBITUX [Suspect]
     Indication: RECTAL CANCER
     Dosage: 600MG ON 17FEB09;31MAR09 375 MG III AND MOST RECENT INFSUION;THERAPY CONTINUED
     Route: 042
     Dates: start: 20090217
  2. IRINOTECAN HCL [Concomitant]
     Indication: RECTAL CANCER
     Dosage: (140MG) 17MAR09-17MAR09 (110MG) 31MAR09-31MAR09 (80MG) 14APR09-
     Route: 042
     Dates: start: 20090217, end: 20090217
  3. DIPHENHYDRAMINE HCL [Concomitant]
     Indication: PREMEDICATION
     Route: 048
     Dates: start: 20090217
  4. DEXART [Concomitant]
     Indication: PREMEDICATION
     Route: 042
     Dates: start: 20090217
  5. INDISETRON HCL [Concomitant]
     Indication: ANTIEMETIC SUPPORTIVE CARE
     Route: 048
  6. SEROTONE [Concomitant]
     Indication: ANTIEMETIC SUPPORTIVE CARE
     Route: 042
     Dates: start: 20090217
  7. PRIMPERAN [Concomitant]
     Dosage: TABS
     Route: 048
     Dates: start: 20090217
  8. SODIUM BICARBONATE [Concomitant]
     Route: 048
     Dates: start: 20090217
  9. URSO 250 [Concomitant]
     Dosage: TABS
     Route: 048
     Dates: start: 20090217

REACTIONS (2)
  - SKIN REACTION [None]
  - WOUND DECOMPOSITION [None]
